FAERS Safety Report 12937836 (Version 2)
Quarter: 2016Q4

REPORT INFORMATION
  Report Type: Spontaneous
  Country: AU (occurrence: AU)
  Receive Date: 20161114
  Receipt Date: 20161117
  Transmission Date: 20170207
  Serious: Yes (Other)
  Sender: FDA-Public Use
  Company Number: AU-PFIZER INC-2016367268

PATIENT
  Age: 58 Year
  Sex: Female

DRUGS (7)
  1. MOGADON [Concomitant]
     Active Substance: NITRAZEPAM
     Dosage: TWO AT NIGHT
     Dates: start: 2015
  2. METHOTREXATE (METHOTREXATE SODIUM) [Suspect]
     Active Substance: METHOTREXATE SODIUM
     Dosage: 10 MG, WEEKLY (1 EVERY SATURDAY)
     Dates: start: 201607
  3. METHOTREXATE (METHOTREXATE SODIUM) [Suspect]
     Active Substance: METHOTREXATE SODIUM
     Indication: LUPUS-LIKE SYNDROME
     Dosage: HALF OF 2.5 MG, 1 EVERY WEEK
     Dates: start: 201607, end: 201608
  4. DEPTRAN /00138002/ [Concomitant]
     Active Substance: DOXEPIN HYDROCHLORIDE
     Dosage: 25 MG, 2X/DAY (ONE AM AND PM)
     Dates: start: 2007
  5. SANDOMIGRAN [Concomitant]
     Active Substance: PIZOTYLINE
     Dosage: 5 MG AT 4 PM
     Dates: start: 2013
  6. SOMAC [Concomitant]
     Active Substance: PANTOPRAZOLE SODIUM
     Dosage: 40MG ONE IN 1 AM
     Dates: start: 2011
  7. TARGIN [Concomitant]
     Active Substance: NALOXONE HYDROCHLORIDE\OXYCODONE HYDROCHLORIDE
     Dosage: ONE AM AND PM
     Dates: start: 2013

REACTIONS (6)
  - Visual acuity reduced [Unknown]
  - Product colour issue [Unknown]
  - Product size issue [Unknown]
  - Product commingling [Unknown]
  - Product shape issue [Unknown]
  - Circumstance or information capable of leading to medication error [Unknown]

NARRATIVE: CASE EVENT DATE: 20160817
